FAERS Safety Report 16810226 (Version 2)
Quarter: 2019Q4

REPORT INFORMATION
  Report Type: Report from Study
  Country: US (occurrence: US)
  Receive Date: 20190916
  Receipt Date: 20191030
  Transmission Date: 20200122
  Serious: Yes (Other)
  Sender: FDA-Public Use
  Company Number: US-JNJFOC-20190809875

PATIENT
  Sex: Male

DRUGS (3)
  1. IMBRUVICA [Suspect]
     Active Substance: IBRUTINIB
     Route: 048
     Dates: start: 20190225
  2. IMBRUVICA [Suspect]
     Active Substance: IBRUTINIB
     Indication: RENAL CANCER
     Dosage: 420 MG, QD
     Route: 048
     Dates: start: 20190823
  3. IMBRUVICA [Suspect]
     Active Substance: IBRUTINIB
     Indication: B-CELL SMALL LYMPHOCYTIC LYMPHOMA
     Dosage: 420 MG, QD
     Route: 048
     Dates: start: 20190226

REACTIONS (4)
  - Thyroid hormones increased [Unknown]
  - Renal failure [Unknown]
  - Weight decreased [Unknown]
  - Hernia [Unknown]
